FAERS Safety Report 5055025-2 (Version None)
Quarter: 2006Q3

REPORT INFORMATION
  Report Type: 
  Country: None (occurrence: None)
  Receive Date: 20060717
  Receipt Date: 20060706
  Transmission Date: 20061208
  Serious: Yes (Hospitalization, Other)
  Sender: FDA-Public Use
  Company Number: 2006-07-0218

PATIENT
  Age: 49 Year
  Sex: Male

DRUGS (13)
  1. PEG-INTRON [Suspect]
     Indication: HEPATITIS C
     Dosage: 1.5 MCG/KG/WK SUBCUTANEOUS
     Route: 058
     Dates: start: 20020901, end: 20030101
  2. METOPROLOL TARTRATE [Concomitant]
  3. LISINOPRIL [Concomitant]
  4. SIMVASTATIN [Concomitant]
  5. FOLIC ACID [Concomitant]
  6. EPOGEN [Concomitant]
  7. CALCIUM CARBONATE [Concomitant]
  8. ACYCLOVIR [Concomitant]
  9. DOCUSATE SODIUM [Concomitant]
  10. NEPHROCAPS [Concomitant]
  11. MULTIVITAMIN [Concomitant]
  12. VANCOMYCIN [Concomitant]
  13. GENTAMICIN [Concomitant]

REACTIONS (5)
  - ARTERIOVENOUS FISTULA SITE INFECTION [None]
  - FEBRILE NEUTROPENIA [None]
  - INCORRECT DOSE ADMINISTERED [None]
  - KIDNEY TRANSPLANT REJECTION [None]
  - PERINEPHRIC EFFUSION [None]
